FAERS Safety Report 20764135 (Version 1)
Quarter: 2022Q2

REPORT INFORMATION
  Report Type: Report from Study
  Country: CN (occurrence: CN)
  Receive Date: 20220428
  Receipt Date: 20220428
  Transmission Date: 20220721
  Serious: Yes (Hospitalization)
  Sender: FDA-Public Use
  Company Number: CN-PFIZER INC-202200612947

PATIENT
  Age: 66 Year
  Sex: Female
  Weight: 76 kg

DRUGS (2)
  1. PACLITAXEL [Suspect]
     Active Substance: PACLITAXEL
     Indication: Triple negative breast cancer
     Dosage: 80 MG/M2, WEEKLY, 1 IN 1 WK
     Route: 042
     Dates: start: 20200901
  2. PACLITAXEL [Suspect]
     Active Substance: PACLITAXEL
     Dosage: 146.1 MG, WEEKLY, 1 IN 1 WK
     Route: 042
     Dates: start: 20201110, end: 20201110

REACTIONS (1)
  - Neutrophil count decreased [Recovered/Resolved]

NARRATIVE: CASE EVENT DATE: 20201115
